FAERS Safety Report 19457700 (Version 1)
Quarter: 2021Q2

REPORT INFORMATION
  Report Type: Spontaneous
  Country: US (occurrence: US)
  Receive Date: 20210624
  Receipt Date: 20210624
  Transmission Date: 20210717
  Serious: No
  Sender: FDA-Public Use
  Company Number: US-BAYER-2021-163418

PATIENT
  Age: 83 Year
  Sex: Female

DRUGS (4)
  1. PRAVACHOL [Concomitant]
     Active Substance: PRAVASTATIN SODIUM
  2. NO IDENTIFIABLE DRUG [Concomitant]
     Active Substance: UNSPECIFIED INGREDIENT
  3. CLIMARA [Suspect]
     Active Substance: ESTRADIOL
     Route: 062
  4. SYNTHROID [Concomitant]
     Active Substance: LEVOTHYROXINE SODIUM

REACTIONS (2)
  - Product dose omission issue [None]
  - Product adhesion issue [None]

NARRATIVE: CASE EVENT DATE: 20210614
